FAERS Safety Report 6276350-3 (Version None)
Quarter: 2009Q3

REPORT INFORMATION
  Report Type: 
  Country: None (occurrence: None)
  Receive Date: 20090713
  Receipt Date: 20090713
  Transmission Date: 20100115
  Serious: Yes (Hospitalization)
  Sender: FDA-Public Use
  Company Number: None

PATIENT
  Age: 66 Year
  Weight: 64.8 kg

DRUGS (10)
  1. SUNITINIB [Suspect]
     Indication: NON-SMALL CELL LUNG CANCER
     Dosage: 25 MG, QD, PO
     Route: 048
     Dates: start: 20090429, end: 20090527
  2. RAPAMYCIN [Suspect]
     Indication: NON-SMALL CELL LUNG CANCER
     Dosage: 2 MG, QD, PO
     Route: 048
     Dates: start: 20090429, end: 20090528
  3. METHADONE HCL [Concomitant]
  4. REMERON [Concomitant]
  5. SEROQUEL [Concomitant]
  6. MIRALAX [Concomitant]
  7. PRILOSEC [Concomitant]
  8. ALBUTEROL [Concomitant]
  9. ZOFRAN [Concomitant]
  10. ALPRAZOLAM [Concomitant]

REACTIONS (7)
  - FEBRILE NEUTROPENIA [None]
  - LUNG CONSOLIDATION [None]
  - LUNG INFILTRATION [None]
  - LYMPHOPENIA [None]
  - OPPORTUNISTIC INFECTION [None]
  - SPUTUM CULTURE POSITIVE [None]
  - STAPHYLOCOCCAL INFECTION [None]
